FAERS Safety Report 8865148 (Version 1)
Quarter: 2012Q4

REPORT INFORMATION
  Report Type: 
  Country: US (occurrence: US)
  Receive Date: 20121024
  Receipt Date: 20121024
  Transmission Date: 20130627
  Serious: No
  Sender: FDA-Public Use
  Company Number: US-AMGEN-USASP2012001303

PATIENT
  Age: 44 Year
  Sex: Female
  Weight: 52.61 kg

DRUGS (6)
  1. ENBREL [Suspect]
     Indication: PRODUCT USED FOR UNKNOWN INDICATION
     Dosage: 50 mg, qwk
     Route: 058
  2. DEPO-PROVERA [Concomitant]
     Dosage: 400 ml, UNK
  3. RELPAX [Concomitant]
     Dosage: 40 mg, UNK
  4. PROPRANOLOL [Concomitant]
     Dosage: 1 mg, UNK
  5. IRON [Concomitant]
     Dosage: 18 mg, UNK
  6. CALCIUM D                          /00944201/ [Concomitant]
     Dosage: UNK

REACTIONS (1)
  - Nasopharyngitis [Unknown]
